FAERS Safety Report 9857553 (Version 1)
Quarter: 2014Q1

REPORT INFORMATION
  Report Type: Spontaneous
  Country: FR (occurrence: FR)
  Receive Date: 20140131
  Receipt Date: 20140131
  Transmission Date: 20141002
  Serious: Yes (Other)
  Sender: FDA-Public Use
  Company Number: PHHY2014FR009288

PATIENT
  Age: 81 Year
  Sex: Male

DRUGS (13)
  1. RASILEZ [Suspect]
     Dosage: UNK UKN, UNK
  2. LASILIX [Suspect]
     Indication: IDIOPATHIC PULMONARY FIBROSIS
     Dosage: UNK UKN, UNK
     Dates: start: 20131112, end: 20131122
  3. PIRFENIDONE [Suspect]
     Indication: IDIOPATHIC PULMONARY FIBROSIS
     Dosage: 1602 MG, DAILY
     Route: 048
     Dates: start: 20131008
  4. PREVISCAN [Concomitant]
     Dosage: UNK UKN, UNK
  5. PRAVASTATIN [Concomitant]
     Dosage: UNK UKN, UNK
  6. CORDARONE [Concomitant]
     Dosage: UNK UKN, UNK
  7. OMEPRAZOLE [Concomitant]
     Dosage: UNK UKN, UNK
  8. OXYGEN [Concomitant]
     Dosage: 2 L/MIN, UNK
     Dates: end: 20131105
  9. OXYGEN [Concomitant]
     Dosage: 3 L/MIN, UNK
     Dates: start: 20131105
  10. SOLUPRED [Concomitant]
     Dosage: 90 MG, UNK
     Dates: start: 20131112, end: 20131122
  11. SOLUPRED [Concomitant]
     Dosage: 50 MG, UNK
     Dates: start: 20131123, end: 20131130
  12. SOLUPRED [Concomitant]
     Dosage: 10 MG, UNK
     Dates: start: 20131201, end: 20131205
  13. SOLUPRED [Concomitant]
     Dosage: 20 MG, UNK
     Dates: start: 20131206

REACTIONS (2)
  - Renal impairment [Recovered/Resolved]
  - Cardiac valve disease [Not Recovered/Not Resolved]
